FAERS Safety Report 21254508 (Version 1)
Quarter: 2022Q3

REPORT INFORMATION
  Report Type: Report from Study
  Country: FR (occurrence: FR)
  Receive Date: 20220825
  Receipt Date: 20220825
  Transmission Date: 20221026
  Serious: Yes (Hospitalization)
  Sender: FDA-Public Use
  Company Number: FR-ABBVIE-22K-056-4515723-00

PATIENT
  Age: 68 Year
  Sex: Female
  Weight: 67 kg

DRUGS (7)
  1. UPADACITINIB [Suspect]
     Active Substance: UPADACITINIB
     Indication: Rheumatoid arthritis
     Route: 048
     Dates: start: 20210811
  2. STREPTOCOCCUS PNEUMONIAE [Concomitant]
     Indication: Product used for unknown indication
  3. SEASONALE [Concomitant]
     Active Substance: ETHINYL ESTRADIOL\LEVONORGESTREL
     Indication: Product used for unknown indication
     Dosage: SEASONAL INFLUENZA VACCINE
  4. OPIUM ALKALOID [Concomitant]
     Indication: Cough
     Route: 048
     Dates: start: 20220209
  5. ALBUTEROL [Concomitant]
     Active Substance: ALBUTEROL
     Indication: Cough
     Route: 048
     Dates: start: 20220209
  6. METHOTREXATE [Concomitant]
     Active Substance: METHOTREXATE
     Indication: Rheumatoid arthritis
     Route: 048
  7. PREDNISOLONE [Concomitant]
     Active Substance: PREDNISOLONE
     Indication: Rheumatoid arthritis
     Route: 048
     Dates: start: 20210129

REACTIONS (2)
  - Fractured sacrum [Recovered/Resolved]
  - Anaemia [Recovering/Resolving]

NARRATIVE: CASE EVENT DATE: 20220711
